FAERS Safety Report 20449406 (Version 1)
Quarter: 2022Q1

REPORT INFORMATION
  Report Type: Spontaneous
  Country: US (occurrence: None)
  Receive Date: 20220208
  Receipt Date: 20220208
  Transmission Date: 20220424
  Serious: No
  Sender: FDA-Public Use
  Company Number: None

PATIENT
  Sex: Male
  Weight: 68.49 kg

DRUGS (14)
  1. PACLITAXEL [Suspect]
     Active Substance: PACLITAXEL
     Indication: Lung carcinoma cell type unspecified stage 0
     Dosage: OTHER FREQUENCY : EVERY 21 DAYS;?
     Route: 042
  2. ADVAIR DISKUS [Concomitant]
     Active Substance: FLUTICASONE PROPIONATE\SALMETEROL XINAFOATE
  3. DOCUSATE [Concomitant]
     Active Substance: DOCUSATE
  4. LEVOTHYROXINE [Concomitant]
     Active Substance: LEVOTHYROXINE
  5. OXYCODONE [Concomitant]
     Active Substance: OXYCODONE
  6. PROAIR HFA [Concomitant]
     Active Substance: ALBUTEROL SULFATE
  7. DIPHENHYDRAMINE [Concomitant]
     Active Substance: DIPHENHYDRAMINE
  8. FAMOTIDINE [Concomitant]
     Active Substance: FAMOTIDINE
  9. CARBOPLATIN [Concomitant]
     Active Substance: CARBOPLATIN
  10. KEYTRUDA [Concomitant]
     Active Substance: PEMBROLIZUMAB
  11. PALNOSETRON [Concomitant]
  12. MIRALAX [Concomitant]
     Active Substance: POLYETHYLENE GLYCOL 3350
  13. MS CONTIN [Concomitant]
     Active Substance: MORPHINE SULFATE
  14. TGT SENNA [Concomitant]

REACTIONS (3)
  - Flushing [None]
  - Chest pain [None]
  - Oxygen saturation decreased [None]
